FAERS Safety Report 5642317-9 (Version None)
Quarter: 2008Q1

REPORT INFORMATION
  Report Type: 
  Country: None (occurrence: None)
  Receive Date: 20080225
  Receipt Date: 20080208
  Transmission Date: 20080703
  Serious: Yes (Other)
  Sender: FDA-Public Use
  Company Number: 2008S1002330

PATIENT
  Sex: Male

DRUGS (4)
  1. LISINOPRIL [Suspect]
     Indication: BLOOD PRESSURE
     Dosage: 20 MG;DAILY;ORAL
     Route: 048
     Dates: start: 20000601
  2. HYDROCHLOROTHIAZIDE [Suspect]
     Indication: HYPERTENSION
     Dosage: 12.5 MG;DAILY;ORAL
     Route: 048
     Dates: start: 20000101
  3. SIMVASTATIN [Concomitant]
  4. AVANDIA [Concomitant]

REACTIONS (5)
  - DIABETES MELLITUS [None]
  - INSOMNIA [None]
  - MEMORY IMPAIRMENT [None]
  - NEOPLASM MALIGNANT [None]
  - POLLAKIURIA [None]
